FAERS Safety Report 4345588-4 (Version None)
Quarter: 2004Q2

REPORT INFORMATION
  Report Type: 
  Country: None (occurrence: None)
  Receive Date: 20040421
  Receipt Date: 20040409
  Transmission Date: 20050107
  Serious: Yes (Death, Hospitalization)
  Sender: FDA-Public Use
  Company Number: US072364

PATIENT
  Sex: Male

DRUGS (1)
  1. ENBREL [Suspect]
     Dates: start: 20030901

REACTIONS (2)
  - AUTOIMMUNE DISORDER [None]
  - VASCULITIS [None]
